FAERS Safety Report 12467505 (Version 1)
Quarter: 2016Q2

REPORT INFORMATION
  Report Type: Spontaneous
  Country: CN (occurrence: CN)
  Receive Date: 20160615
  Receipt Date: 20160615
  Transmission Date: 20160815
  Serious: Yes (Other)
  Sender: FDA-Public Use
  Company Number: CN-ROCHE-1774775

PATIENT
  Age: 44 Year
  Sex: Female

DRUGS (7)
  1. VISUDYNE [Suspect]
     Active Substance: VERTEPORFIN
     Indication: CHORIORETINOPATHY
     Dosage: UNK
     Route: 031
  2. LUCENTIS [Suspect]
     Active Substance: RANIBIZUMAB
     Indication: CHORIORETINOPATHY
     Route: 050
     Dates: start: 20130422
  3. TOBRAMYCIN. [Concomitant]
     Active Substance: TOBRAMYCIN
  4. TROPICAMIDE. [Concomitant]
     Active Substance: TROPICAMIDE
     Indication: MYDRIASIS
  5. LEVOFLOXACIN. [Concomitant]
     Active Substance: LEVOFLOXACIN
  6. DEXAMETHASONE. [Concomitant]
     Active Substance: DEXAMETHASONE
  7. SODIUM CHLORIDE. [Concomitant]
     Active Substance: SODIUM CHLORIDE

REACTIONS (2)
  - Visual acuity reduced [Recovering/Resolving]
  - Vitreous haemorrhage [Recovering/Resolving]

NARRATIVE: CASE EVENT DATE: 20130422
